FAERS Safety Report 25537213 (Version 4)
Quarter: 2025Q3

REPORT INFORMATION
  Report Type: Report from Study
  Country: US (occurrence: US)
  Receive Date: 20250710
  Receipt Date: 20250909
  Transmission Date: 20251021
  Serious: Yes (Other)
  Sender: ACADIA PHARMACEUTICALS
  Company Number: US-ACADIA PHARMACEUTICALS INC.-ACA-2025-PIM-008007

PATIENT
  Sex: Male

DRUGS (1)
  1. NUPLAZID [Suspect]
     Active Substance: PIMAVANSERIN TARTRATE
     Indication: Parkinson^s disease psychosis
     Dosage: 34 MILLIGRAM, QD (EVERY NIGHT)
     Route: 048
     Dates: start: 20250520

REACTIONS (5)
  - Hallucination [Recovering/Resolving]
  - Dizziness [Unknown]
  - Confusional state [Unknown]
  - Product dose omission issue [Unknown]
  - Drug ineffective [Unknown]
